FAERS Safety Report 23366606 (Version 4)
Quarter: 2024Q1

REPORT INFORMATION
  Report Type: Report from Study
  Country: CN (occurrence: CN)
  Receive Date: 20240104
  Receipt Date: 20240213
  Transmission Date: 20240410
  Serious: Yes (Hospitalization)
  Sender: FDA-Public Use
  Company Number: CN-PFIZER INC-PV202300209348

PATIENT
  Age: 54 Year
  Sex: Male
  Weight: 59 kg

DRUGS (16)
  1. IRINOTECAN HYDROCHLORIDE [Suspect]
     Active Substance: IRINOTECAN HYDROCHLORIDE
     Indication: Pancreatic carcinoma
     Dosage: 135 MG/M2, TOTAL DOSE 244, INFUSION
     Route: 042
     Dates: start: 20220119, end: 20220119
  2. IRINOTECAN HYDROCHLORIDE [Suspect]
     Active Substance: IRINOTECAN HYDROCHLORIDE
     Dosage: 135 MG/M2, TOTAL DOSE 229, INFUSION
     Route: 042
     Dates: start: 20220415, end: 20220415
  3. OXALIPLATIN [Suspect]
     Active Substance: OXALIPLATIN
     Indication: Pancreatic carcinoma
     Dosage: 68 MG/M2, TOTAL DOSE 123, INFUSION
     Route: 042
     Dates: start: 20220118, end: 20220118
  4. OXALIPLATIN [Suspect]
     Active Substance: OXALIPLATIN
     Dosage: 68 MG/M2, TOTAL DOSE 115, INFUSION
     Route: 042
     Dates: start: 20220415, end: 20220415
  5. FLUOROURACIL [Suspect]
     Active Substance: FLUOROURACIL
     Indication: Pancreatic carcinoma
     Dosage: BOLUS INFUSION
     Route: 065
  6. FLUOROURACIL [Suspect]
     Active Substance: FLUOROURACIL
     Dosage: CONTINUOUS INFUSION, TOTAL DOSE 4344
     Route: 042
     Dates: start: 20220119, end: 20220119
  7. FLUOROURACIL [Suspect]
     Active Substance: FLUOROURACIL
     Dosage: CONTINUOUS INFUSION, TOTAL DOSE 4068
     Route: 042
     Dates: start: 20220417, end: 20220417
  8. INVESTIGATIONAL PRODUCT [Suspect]
     Active Substance: INVESTIGATIONAL PRODUCT
     Indication: Pancreatic carcinoma
     Dosage: UNK
     Route: 042
     Dates: start: 20220119, end: 20220119
  9. INVESTIGATIONAL PRODUCT [Suspect]
     Active Substance: INVESTIGATIONAL PRODUCT
     Dosage: UNK
     Dates: start: 20220415, end: 20220415
  10. LEUCOVORIN [Concomitant]
     Active Substance: LEUCOVORIN\LEUCOVORIN CALCIUM
     Indication: Pancreatic carcinoma
     Dosage: 400 MG/M2, TOTAL DOSE 724, INFUSION
     Route: 042
     Dates: start: 20220118, end: 20220118
  11. LEUCOVORIN [Concomitant]
     Active Substance: LEUCOVORIN\LEUCOVORIN CALCIUM
     Dosage: 400 MG/M2, TOTAL DOSE 678, INFUSION
     Route: 042
     Dates: start: 20220415, end: 20220415
  12. ANF-RHO [Concomitant]
     Active Substance: ANF-RHO
     Dosage: UNK
     Dates: start: 20220428, end: 20220516
  13. GLUTATHIONE [Concomitant]
     Active Substance: GLUTATHIONE
     Dosage: UNK
     Dates: start: 20220428, end: 20220429
  14. METHIONINE AND VITAMIN B1 [Concomitant]
     Dosage: UNK
     Dates: start: 20220428, end: 20220429
  15. POTASSIUM CHLORIDE [Concomitant]
     Active Substance: POTASSIUM CHLORIDE
     Dosage: UNK
     Dates: start: 20220428, end: 20220429
  16. DEXTROSE\SODIUM CHLORIDE [Concomitant]
     Active Substance: DEXTROSE\SODIUM CHLORIDE
     Dosage: UNK
     Dates: start: 20220428, end: 20220429

REACTIONS (2)
  - Hepatic function abnormal [Recovered/Resolved]
  - Infection [Recovered/Resolved]

NARRATIVE: CASE EVENT DATE: 20220429
